FAERS Safety Report 9530691 (Version 17)
Quarter: 2016Q1

REPORT INFORMATION
  Report Type: Report from Study
  Country: CA (occurrence: CA)
  Receive Date: 20130918
  Receipt Date: 20160219
  Transmission Date: 20160526
  Serious: Yes (Hospitalization, Other)
  Sender: FDA-Public Use
  Company Number: CA-ROCHE-1066236

PATIENT
  Age: 73 Year
  Sex: Female
  Weight: 50 kg

DRUGS (14)
  1. ALENDRONATE [Concomitant]
     Active Substance: ALENDRONATE SODIUM
  2. ACTEMRA [Suspect]
     Active Substance: TOCILIZUMAB
     Route: 042
     Dates: start: 20141106
  3. PREDNISONE. [Concomitant]
     Active Substance: PREDNISONE
     Dosage: AS REQUIRED
     Route: 065
  4. FOLIC ACID. [Concomitant]
     Active Substance: FOLIC ACID
  5. PLAQUENIL [Concomitant]
     Active Substance: HYDROXYCHLOROQUINE SULFATE
  6. FAMOTIDINE. [Concomitant]
     Active Substance: FAMOTIDINE
  7. AURANOFIN [Concomitant]
     Active Substance: AURANOFIN
  8. ACTEMRA [Suspect]
     Active Substance: TOCILIZUMAB
     Route: 042
  9. METHOTREXATE [Concomitant]
     Active Substance: METHOTREXATE
     Indication: RHEUMATOID ARTHRITIS
  10. SULFASALAZINE. [Concomitant]
     Active Substance: SULFASALAZINE
  11. ACTEMRA [Suspect]
     Active Substance: TOCILIZUMAB
     Indication: RHEUMATOID ARTHRITIS
     Route: 042
     Dates: start: 20110421, end: 20150414
  12. ACTEMRA [Suspect]
     Active Substance: TOCILIZUMAB
     Route: 042
     Dates: start: 20140715
  13. TYLENOL [Concomitant]
     Active Substance: ACETAMINOPHEN
     Indication: PAIN
  14. ARAVA [Concomitant]
     Active Substance: LEFLUNOMIDE

REACTIONS (26)
  - Gastrointestinal haemorrhage [Unknown]
  - Macular degeneration [Unknown]
  - Eye infection [Unknown]
  - Lower respiratory tract infection [Unknown]
  - Nasopharyngitis [Unknown]
  - Malaise [Not Recovered/Not Resolved]
  - Pneumonia [Not Recovered/Not Resolved]
  - Dizziness [Unknown]
  - Cough [Unknown]
  - Rhinorrhoea [Not Recovered/Not Resolved]
  - Pneumonia [Recovered/Resolved with Sequelae]
  - Blood pressure increased [Unknown]
  - Nausea [Unknown]
  - Dyspnoea [Unknown]
  - Intestinal obstruction [Not Recovered/Not Resolved]
  - Infection [Not Recovered/Not Resolved]
  - Urinary tract infection [Unknown]
  - Tinnitus [Unknown]
  - Platelet count decreased [Unknown]
  - Joint swelling [Unknown]
  - Pruritus [Unknown]
  - Cystitis [Unknown]
  - Infusion related reaction [Unknown]
  - Cataract [Unknown]
  - Eye pruritus [Unknown]
  - Constipation [Not Recovered/Not Resolved]

NARRATIVE: CASE EVENT DATE: 20120414
